FAERS Safety Report 5632200-7 (Version None)
Quarter: 2008Q1

REPORT INFORMATION
  Report Type: 
  Country: None (occurrence: None)
  Receive Date: 20080213
  Receipt Date: 20080204
  Transmission Date: 20080703
  Serious: Yes (Other)
  Sender: FDA-Public Use
  Company Number: ES-GDP-07403248

PATIENT
  Age: 37 Year
  Sex: Female

DRUGS (1)
  1. METVIXIA [Suspect]
     Indication: BASAL CELL CARCINOMA
     Dosage: 1 DF TOTAL; TOPICAL
     Route: 061
     Dates: start: 20071120, end: 20071120

REACTIONS (4)
  - BLEPHARITIS [None]
  - ERYTHEMA [None]
  - INFLAMMATION [None]
  - PAIN OF SKIN [None]
